FAERS Safety Report 9260591 (Version 1)
Quarter: 2013Q2

REPORT INFORMATION
  Report Type: Spontaneous
  Country: US (occurrence: US)
  Receive Date: 20130429
  Receipt Date: 20130429
  Transmission Date: 20140414
  Serious: Yes (Other)
  Sender: FDA-Public Use
  Company Number: US-BAYER-2013-051471

PATIENT
  Age: 32 Year
  Sex: Female

DRUGS (2)
  1. MIRENA [Suspect]
     Indication: CONTRACEPTION
     Dosage: 20 MCG/24HR, CONT
     Route: 015
     Dates: start: 20130408
  2. MIRENA [Suspect]
     Indication: CONTRACEPTION
     Dosage: UNK

REACTIONS (7)
  - Procedural haemorrhage [Recovered/Resolved]
  - Procedural pain [None]
  - Pregnancy with contraceptive device [Not Recovered/Not Resolved]
  - Medication error [None]
  - Fatigue [Not Recovered/Not Resolved]
  - Decreased appetite [Not Recovered/Not Resolved]
  - Abdominal discomfort [Not Recovered/Not Resolved]
